FAERS Safety Report 5563810-3 (Version None)
Quarter: 2007Q4

REPORT INFORMATION
  Report Type: 
  Country: None (occurrence: None)
  Receive Date: 20071217
  Receipt Date: 20070830
  Transmission Date: 20080405
  Serious: No
  Sender: FDA-Public Use
  Company Number: US-ASTRAZENECA-2007UW20685

PATIENT
  Age: 76 Year
  Sex: Male
  Weight: 97.5 kg

DRUGS (1)
  1. CRESTOR [Suspect]
     Indication: DYSLIPIDAEMIA
     Dosage: FOR 2 WEEKS.
     Dates: start: 20070801

REACTIONS (1)
  - GOUT [None]
